FAERS Safety Report 8024293-7 (Version None)
Quarter: 2012Q1

REPORT INFORMATION
  Report Type: 
  Country: None (occurrence: None)
  Receive Date: 20120105
  Receipt Date: 20111221
  Transmission Date: 20120608
  Serious: Yes (Death)
  Sender: FDA-Public Use
  Company Number: GB-CELGENEUS-167-21880-11122237

PATIENT
  Age: 49 Year
  Sex: Female

DRUGS (5)
  1. REVLIMID [Suspect]
     Dosage: 10 MILLIGRAM
     Route: 048
     Dates: start: 20111123, end: 20111208
  2. FLUID [Concomitant]
     Indication: RENAL IMPAIRMENT
     Route: 065
  3. DEXAMETHASONE [Suspect]
     Dosage: 40 MILLIGRAM
     Route: 048
     Dates: start: 20111123, end: 20111207
  4. PAMIDRONATE DISODIUM [Concomitant]
     Route: 041
  5. CYCLOPHOSPHAMIDE [Suspect]
     Dosage: 350 MILLIGRAM
     Route: 048
     Dates: start: 20111123, end: 20111130

REACTIONS (1)
  - HEPATITIS B [None]
